FAERS Safety Report 21423303 (Version 10)
Quarter: 2023Q2

REPORT INFORMATION
  Report Type: Report from Study
  Country: ES (occurrence: ES)
  Receive Date: 20221007
  Receipt Date: 20230516
  Transmission Date: 20230721
  Serious: Yes (Hospitalization, Other)
  Sender: FDA-Public Use
  Company Number: ES-GILEAD-2022-0599511

PATIENT
  Age: 61 Year
  Sex: Male
  Weight: 111 kg

DRUGS (111)
  1. BREXUCABTAGENE AUTOLEUCEL [Suspect]
     Active Substance: BREXUCABTAGENE AUTOLEUCEL
     Indication: Mantle cell lymphoma
     Dosage: 68 ML
     Route: 065
     Dates: start: 20220909, end: 20220909
  2. FLUDARABINE [Suspect]
     Active Substance: FLUDARABINE PHOSPHATE
     Indication: Bone marrow conditioning regimen
     Dosage: 65 MG
     Route: 065
     Dates: start: 20220825, end: 20220827
  3. CYCLOPHOSPHAMIDE [Suspect]
     Active Substance: CYCLOPHOSPHAMIDE
     Indication: Bone marrow conditioning regimen
     Dosage: 1077 MG
     Route: 065
     Dates: start: 20220825, end: 20220827
  4. MESNA [Suspect]
     Active Substance: MESNA
     Indication: Bone marrow conditioning regimen
     Dosage: 538.52 MG
     Route: 065
     Dates: start: 20220825, end: 20220828
  5. CYTARABINE [Suspect]
     Active Substance: CYTARABINE
     Indication: Product used for unknown indication
     Dosage: 1 GRAM PER SQUARE METRE QD
     Route: 065
     Dates: start: 20220729, end: 20220730
  6. ASPIRIN [Concomitant]
     Active Substance: ASPIRIN
     Dosage: 100,MG,DAILY
     Route: 048
     Dates: start: 2013
  7. ASPIRIN [Concomitant]
     Active Substance: ASPIRIN
     Dosage: 100,MG,DAILY
     Route: 048
     Dates: start: 2013, end: 20220831
  8. ASPIRIN [Concomitant]
     Active Substance: ASPIRIN
     Dosage: 100,MG,DAILY
     Route: 048
     Dates: start: 2013, end: 20220830
  9. BISOPROLOL [Concomitant]
     Active Substance: BISOPROLOL
     Dosage: 2.5,MG,DAILY
     Route: 048
  10. ENALAPRIL [Concomitant]
     Active Substance: ENALAPRIL
     Dosage: 5,MG,DAILY
     Route: 048
  11. ENALAPRIL [Concomitant]
     Active Substance: ENALAPRIL
     Dosage: 5,MG,DAILY
     Route: 048
  12. ATORVASTATIN [Concomitant]
     Active Substance: ATORVASTATIN
     Dosage: 10,MG,DAILY
     Route: 048
  13. ATORVASTATIN [Concomitant]
     Active Substance: ATORVASTATIN
     Dosage: 10,MG,DAILY
     Route: 048
  14. ALLOPURINOL [Concomitant]
     Active Substance: ALLOPURINOL
     Dosage: 100,MG,THREE TIMES DAILY
     Route: 048
     Dates: start: 20220823, end: 20220824
  15. ALLOPURINOL [Concomitant]
     Active Substance: ALLOPURINOL
     Dosage: 300,MG,DAILY
     Route: 048
     Dates: end: 20220822
  16. ALLOPURINOL [Concomitant]
     Active Substance: ALLOPURINOL
     Dosage: 300,MG,DAILY
     Route: 048
     Dates: end: 20220828
  17. ALLOPURINOL [Concomitant]
     Active Substance: ALLOPURINOL
     Dosage: 300MG,THREE TIMES DAILY
     Route: 048
     Dates: start: 20220825, end: 20221018
  18. OMEPRAZOLE [Concomitant]
     Active Substance: OMEPRAZOLE
     Dosage: 20,MG,DAILY
     Route: 048
     Dates: end: 20221010
  19. HUMAN RED BLOOD CELL [Concomitant]
     Active Substance: HUMAN RED BLOOD CELL
     Dosage: UNK
     Route: 042
     Dates: start: 20220830, end: 20221022
  20. PLATELETS [Concomitant]
     Active Substance: HUMAN PLATELET, ALLOGENIC
     Dosage: UNK
     Route: 042
     Dates: start: 20220905, end: 20221021
  21. BEMIPARIN [Concomitant]
     Active Substance: BEMIPARIN
     Dosage: 3500,OTHER,DAILY
     Route: 058
     Dates: start: 20220823, end: 20220902
  22. PHYTONADIONE [Concomitant]
     Active Substance: PHYTONADIONE
     Dosage: 10,MG,DAILY
     Route: 042
     Dates: start: 20220823, end: 20220831
  23. PHYTONADIONE [Concomitant]
     Active Substance: PHYTONADIONE
     Dosage: 10,MG,DAILY
     Route: 042
     Dates: start: 20220903, end: 20220916
  24. PHYTONADIONE [Concomitant]
     Active Substance: PHYTONADIONE
     Dosage: 10,MG,THREE TIMES DAILY
     Route: 042
     Dates: start: 20220917, end: 20220921
  25. PHYTONADIONE [Concomitant]
     Active Substance: PHYTONADIONE
     Dosage: 10,MG,FOUR TIMES DAILY
     Route: 042
     Dates: start: 20220918, end: 20221007
  26. PHYTONADIONE [Concomitant]
     Active Substance: PHYTONADIONE
     Dosage: 10,MG,DAILY
     Route: 042
     Dates: start: 20221015, end: 20221025
  27. PHYTONADIONE [Concomitant]
     Active Substance: PHYTONADIONE
     Dosage: 10,MG,DAILY
     Route: 042
     Dates: start: 20220823, end: 20220824
  28. PHYTONADIONE [Concomitant]
     Active Substance: PHYTONADIONE
     Dosage: 10,MG,ONCE
     Route: 042
     Dates: start: 20220826, end: 20220826
  29. PHYTONADIONE [Concomitant]
     Active Substance: PHYTONADIONE
     Dosage: 10,MG,TWICE DAILY
     Route: 042
     Dates: start: 20220827, end: 20220829
  30. PHYTONADIONE [Concomitant]
     Active Substance: PHYTONADIONE
     Dosage: 10,MG,FOUR TIMES DARILY
     Route: 042
     Dates: start: 20220921, end: 20221007
  31. PHYTONADIONE [Concomitant]
     Active Substance: PHYTONADIONE
     Dosage: 1,G, THREE TIMES DAILY
     Route: 042
     Dates: start: 20220922, end: 20220923
  32. PHYTONADIONE [Concomitant]
     Active Substance: PHYTONADIONE
     Dosage: 1,G,TWICE DAILY
     Route: 042
     Dates: start: 20220923, end: 20220926
  33. URSODIOL [Concomitant]
     Active Substance: URSODIOL
     Dosage: 150,MG,FOUR TIMES DAILY
     Route: 048
     Dates: start: 20220823, end: 20221025
  34. POLYETHYLENE GLYCOLS [Concomitant]
     Active Substance: POLYETHYLENE GLYCOLS
     Dosage: 13.8,G,DAILY
     Route: 048
     Dates: start: 20220824, end: 20220828
  35. CLORHEXIDINA [CHLORHEXIDINE] [Concomitant]
     Dosage: 15,ML,THREE TIMES DAILY
     Route: 050
     Dates: start: 20220825, end: 20221025
  36. FUROSEMIDE [Concomitant]
     Active Substance: FUROSEMIDE
     Dosage: 20,MG,DAILY
     Route: 042
     Dates: start: 20220825, end: 20220913
  37. FUROSEMIDE [Concomitant]
     Active Substance: FUROSEMIDE
     Dosage: 40,MG,ONCE
     Route: 042
     Dates: start: 20220826, end: 20220828
  38. FUROSEMIDE [Concomitant]
     Active Substance: FUROSEMIDE
     Dosage: 40,MG,TWICE DAILY
     Route: 042
     Dates: start: 20220829, end: 20220830
  39. FUROSEMIDE [Concomitant]
     Active Substance: FUROSEMIDE
     Dosage: 20,MG,THREE TIMES DAILY
     Route: 042
     Dates: start: 20220914, end: 20221008
  40. FUROSEMIDE [Concomitant]
     Active Substance: FUROSEMIDE
     Dosage: 20,MG,DAILY
     Route: 042
     Dates: start: 20221009, end: 20221011
  41. FUROSEMIDE [Concomitant]
     Active Substance: FUROSEMIDE
     Dosage: 40,MG,DAILY
     Route: 042
     Dates: start: 20221009, end: 20221012
  42. FUROSEMIDE [Concomitant]
     Active Substance: FUROSEMIDE
     Dosage: 20,MG,TWICE DAILY
     Route: 042
     Dates: start: 20221012, end: 20221021
  43. FUROSEMIDE [Concomitant]
     Active Substance: FUROSEMIDE
     Dosage: 40,MG,TWICE DAILY
     Route: 042
     Dates: start: 20221013, end: 20221021
  44. FUROSEMIDE [Concomitant]
     Active Substance: FUROSEMIDE
     Dosage: 20,MG,DAILY
     Route: 042
     Dates: start: 20221022, end: 20221022
  45. ONDANSETRON [Concomitant]
     Active Substance: ONDANSETRON
     Dosage: 8,MG,DAILY
     Route: 042
     Dates: start: 20220825, end: 20220829
  46. MYCOSTATIN [Concomitant]
     Active Substance: NYSTATIN
     Dosage: 100000,IU,THREE TIMES DAILY
     Route: 050
     Dates: start: 20220825, end: 20221010
  47. RASBURICASE [Concomitant]
     Active Substance: RASBURICASE
     Dosage: 19,MG,DAILY
     Route: 042
     Dates: start: 20220825, end: 20220828
  48. SULFAMETHOXAZOLE\TRIMETHOPRIM [Concomitant]
     Active Substance: SULFAMETHOXAZOLE\TRIMETHOPRIM
     Dosage: 160/800,MG,DAILY
     Route: 048
     Dates: start: 20220825, end: 20220909
  49. SULFAMETHOXAZOLE\TRIMETHOPRIM [Concomitant]
     Active Substance: SULFAMETHOXAZOLE\TRIMETHOPRIM
     Dosage: 160/800,MG,DAILY
     Route: 048
     Dates: start: 20220825, end: 20220830
  50. ACYCLOVIR [Concomitant]
     Active Substance: ACYCLOVIR
     Dosage: 800,MG,TWICE DAILY
     Route: 048
     Dates: start: 20220905, end: 20221006
  51. ACYCLOVIR [Concomitant]
     Active Substance: ACYCLOVIR
     Dosage: 800,MG,TWICE DAILY
     Route: 048
     Dates: start: 20221012, end: 20221025
  52. ACYCLOVIR [Concomitant]
     Active Substance: ACYCLOVIR
     Dosage: 200,MG,TWICE DAILY
     Route: 048
     Dates: start: 20220825, end: 20220904
  53. ALBUMIN HUMAN [Concomitant]
     Active Substance: ALBUMIN HUMAN
     Dosage: 10,G,TWICE DAILY
     Route: 042
     Dates: start: 20220825, end: 20220825
  54. ALBUMIN HUMAN [Concomitant]
     Active Substance: ALBUMIN HUMAN
     Dosage: 10,G,THREE TIMES DAILY
     Route: 042
     Dates: start: 20220826, end: 20220829
  55. ALBUMIN HUMAN [Concomitant]
     Active Substance: ALBUMIN HUMAN
     Dosage: 10,G,DAILY
     Route: 042
     Dates: start: 20220830, end: 20220903
  56. ALBUMIN HUMAN [Concomitant]
     Active Substance: ALBUMIN HUMAN
     Dosage: 10,G,TWICE DAILY
     Route: 042
     Dates: start: 20220912, end: 20220912
  57. ALBUMIN HUMAN [Concomitant]
     Active Substance: ALBUMIN HUMAN
     Dosage: 10,G,THREE TIMES DAILY
     Route: 042
     Dates: start: 20220913, end: 20220922
  58. ALBUMIN HUMAN [Concomitant]
     Active Substance: ALBUMIN HUMAN
     Dosage: 10,G,TWICE DAILY
     Route: 042
     Dates: start: 20220930, end: 20221018
  59. ALBUMIN HUMAN [Concomitant]
     Active Substance: ALBUMIN HUMAN
     Dosage: 10,G,ONCE
     Route: 042
     Dates: start: 20221019, end: 20221019
  60. ALBUMIN HUMAN [Concomitant]
     Active Substance: ALBUMIN HUMAN
     Dosage: 10,G,DAILY
     Route: 042
     Dates: start: 20220830, end: 20220902
  61. ALOCLAIR [POVIDONE] [Concomitant]
     Dosage: 1,OTHER,THREE TIMES DAILY
     Route: 050
     Dates: start: 20220825, end: 20220924
  62. PIPERACILLIN SODIUM\TAZOBACTAM SODIUM [Concomitant]
     Active Substance: PIPERACILLIN SODIUM\TAZOBACTAM SODIUM
     Dosage: 4/0.5,G,FOUR TIMES DAILY
     Route: 042
     Dates: start: 20220827, end: 20220829
  63. PIPERACILLIN SODIUM\TAZOBACTAM SODIUM [Concomitant]
     Active Substance: PIPERACILLIN SODIUM\TAZOBACTAM SODIUM
     Dosage: 4/0.5,G,FOUR TIMES DAILY
     Route: 042
     Dates: start: 20220909, end: 20220922
  64. PIPERACILLIN SODIUM\TAZOBACTAM SODIUM [Concomitant]
     Active Substance: PIPERACILLIN SODIUM\TAZOBACTAM SODIUM
     Dosage: 4/0.5,G,FOUR TMES DAILY
     Route: 042
     Dates: start: 20221014, end: 20221018
  65. DEXCHLORPHENIRAMINE [Concomitant]
     Active Substance: DEXCHLORPHENIRAMINE
     Dosage: 5,MG,ONCE
     Route: 042
     Dates: start: 20220830, end: 20220830
  66. DEXCHLORPHENIRAMINE [Concomitant]
     Active Substance: DEXCHLORPHENIRAMINE
     Dosage: 5,MG,ONCE
     Route: 042
     Dates: start: 20220909, end: 20220909
  67. LEVETIRACETAM [Concomitant]
     Active Substance: LEVETIRACETAM
     Dosage: 500,MG,TWICE DAILY
     Route: 048
     Dates: start: 20220830, end: 20220927
  68. LEVETIRACETAM [Concomitant]
     Active Substance: LEVETIRACETAM
     Dosage: 250,MG,TWICE DAILY
     Route: 048
     Dates: start: 20220928, end: 20221010
  69. LEVOFLOXACIN [Concomitant]
     Active Substance: LEVOFLOXACIN
     Dosage: 500,MG,DAILY
     Route: 042
     Dates: start: 20220905, end: 20220906
  70. LEVOFLOXACIN [Concomitant]
     Active Substance: LEVOFLOXACIN
     Dosage: 500,MG,DAILY
     Route: 042
     Dates: start: 20220927, end: 20221017
  71. ACETAMINOPHEN [Concomitant]
     Active Substance: ACETAMINOPHEN
     Dosage: 1,G,DAILY
     Route: 048
     Dates: start: 20220909, end: 20220910
  72. ACETAMINOPHEN [Concomitant]
     Active Substance: ACETAMINOPHEN
     Dosage: 1,G,DAILY
     Route: 048
     Dates: start: 20220909, end: 20220909
  73. ACETAMINOPHEN [Concomitant]
     Active Substance: ACETAMINOPHEN
     Dosage: 1,G,ONCE
     Route: 042
     Dates: start: 20220915, end: 20220915
  74. ANIDULAFUNGIN [Concomitant]
     Active Substance: ANIDULAFUNGIN
     Dosage: 100,MG,DAILY
     Route: 042
     Dates: start: 20220913, end: 20221025
  75. CANRENOATE POTASSIUM [Concomitant]
     Active Substance: CANRENOATE POTASSIUM
     Dosage: 200,MG,DAILY
     Route: 042
     Dates: start: 20220913, end: 20221010
  76. METOCLOPRAMIDE [Concomitant]
     Active Substance: METOCLOPRAMIDE
     Dosage: 10,MG,DAILY
     Route: 042
     Dates: start: 20220915, end: 20220919
  77. METOCLOPRAMIDE [Concomitant]
     Active Substance: METOCLOPRAMIDE
     Dosage: 10,MG,DAILY
     Route: 042
     Dates: start: 20220915, end: 20220918
  78. TEICOPLANIN [Concomitant]
     Active Substance: TEICOPLANIN
     Dosage: 800,MG,TWICE DAILY
     Route: 042
     Dates: start: 20220915, end: 20220919
  79. TEICOPLANIN [Concomitant]
     Active Substance: TEICOPLANIN
     Dosage: 800,MG, TWICE DAILY
     Route: 042
     Dates: start: 20221020, end: 20221022
  80. FIBRINOGENO [Concomitant]
     Dosage: 1,G,DAILY
     Route: 042
     Dates: start: 20220918, end: 20220920
  81. FIBRINOGENO [Concomitant]
     Dosage: 1,G,TWICE DAILY
     Route: 042
     Dates: start: 20220921, end: 20220922
  82. FIBRINOGENO [Concomitant]
     Dosage: 1,G,THREE TIMES DAILY
     Route: 042
     Dates: start: 20220922, end: 20220923
  83. FIBRINOGENO [Concomitant]
     Dosage: 1,G,TWICE DAILY
     Route: 042
     Dates: start: 20220924, end: 20220927
  84. FIBRINOGENO [Concomitant]
     Dosage: 1,G,DAILY
     Route: 042
     Dates: start: 20220928, end: 20221001
  85. FIBRINOGENO [Concomitant]
     Dosage: 1,G,TWICE DAILY
     Route: 042
     Dates: start: 20221002, end: 20221013
  86. FIBRINOGENO [Concomitant]
     Dosage: 1,G,DAILY
     Route: 042
     Dates: start: 20221014, end: 20221017
  87. FIBRINOGENO [Concomitant]
     Dosage: 1,G,TWICE DAILY
     Route: 042
     Dates: start: 20220923, end: 20220926
  88. FIBRINOGENO [Concomitant]
     Dosage: 1,G,DAILY
     Route: 042
     Dates: start: 20220927, end: 20220930
  89. TRANEXAMIC ACID [Concomitant]
     Active Substance: TRANEXAMIC ACID
     Dosage: 500,MG,THREE TIMES DAILY
     Route: 042
     Dates: start: 20220920, end: 20220923
  90. COMBIPRASAL [IPRATROPIUM BROMIDE;SALBUTAMOL SULFATE] [Concomitant]
     Dosage: 0.5/2.5,MG,THREE TIMES DAILY
     Route: 055
     Dates: start: 20220924, end: 20220929
  91. LINEZOLID [Concomitant]
     Active Substance: LINEZOLID
     Dosage: 600,MG,TWICE DAILY
     Route: 042
     Dates: start: 20220924, end: 20220928
  92. MEROPENEM [Concomitant]
     Active Substance: MEROPENEM
     Dosage: 1,G,THREE TIMES DAILY
     Route: 042
     Dates: start: 20220924, end: 20220928
  93. MEROPENEM [Concomitant]
     Active Substance: MEROPENEM
     Dosage: 1,G, THREE TIMES DAILY
     Route: 042
     Dates: start: 20221021, end: 20221025
  94. ACETYLCYSTEINE [Concomitant]
     Active Substance: ACETYLCYSTEINE
     Dosage: 300,MG,TWICE DAILY
     Route: 050
     Dates: start: 20220925, end: 20220928
  95. CEFTRIAXONE [Concomitant]
     Active Substance: CEFTRIAXONE
     Dosage: 2,G,DAILY
     Route: 042
     Dates: start: 20220928, end: 20221005
  96. CEFTRIAXONE [Concomitant]
     Active Substance: CEFTRIAXONE
     Dosage: 1,G,DAILY
     Route: 042
     Dates: start: 20220829, end: 20220831
  97. CEFTRIAXONE [Concomitant]
     Active Substance: CEFTRIAXONE
     Dosage: 2,G,DAILY
     Route: 042
     Dates: start: 20221018, end: 20221021
  98. FILGRASTIM [Concomitant]
     Active Substance: FILGRASTIM
     Dosage: 48,OTHER,DAILY
     Route: 058
     Dates: start: 20220928, end: 20221013
  99. FOSCARNET [Concomitant]
     Active Substance: FOSCARNET
     Dosage: 5,G,TWICE DAILY
     Route: 042
     Dates: start: 20221005, end: 20221012
  100. AMPHOTERICIN B [Concomitant]
     Active Substance: AMPHOTERICIN B
     Dosage: 24,MG,DAILY
     Route: 055
     Dates: start: 20221014, end: 20221017
  101. OMEPRAZOLE [Concomitant]
     Active Substance: OMEPRAZOLE
     Dosage: 20,MG,DAILY
     Route: 048
     Dates: end: 20221010
  102. PENTAMIDINE [Concomitant]
     Active Substance: PENTAMIDINE
     Dosage: 300,MG,DAILY
     Route: 055
     Dates: start: 20221018, end: 20221025
  103. POTASSIUM CHLORIDE [Concomitant]
     Active Substance: POTASSIUM CHLORIDE
     Dosage: 8,OTHER,THREE TIMES DAILY
     Route: 048
     Dates: start: 20221019, end: 20221020
  104. AMIKACIN [Concomitant]
     Active Substance: AMIKACIN
     Dosage: 1340,MG,DAILY
     Route: 042
     Dates: start: 20221021, end: 20221022
  105. COLISTIMETHATE SODIUM [Concomitant]
     Active Substance: COLISTIMETHATE SODIUM
  106. SPIRONOLACTONE [Concomitant]
     Active Substance: SPIRONOLACTONE
     Dosage: 100,MG,DAILY
     Route: 048
     Dates: start: 20220812, end: 20220902
  107. MAGNESIUM HYDROXIDE [Concomitant]
     Active Substance: MAGNESIUM HYDROXIDE
     Dosage: 2.4,MG,TWICE DAILY
     Route: 048
     Dates: start: 20220827, end: 20220828
  108. MINERAL OIL [Concomitant]
     Active Substance: MINERAL OIL
     Dosage: 15,ML,ONCE
     Route: 048
     Dates: start: 20220901, end: 20220915
  109. LACTULOSE [Concomitant]
     Active Substance: LACTULOSE
     Dosage: 10,G,ONCE
     Route: 048
     Dates: start: 20220909, end: 20220914
  110. LACTULOSE [Concomitant]
     Active Substance: LACTULOSE
     Dosage: 10,G,TWICE DAILY
     Route: 048
     Dates: start: 20220915, end: 20220915
  111. POLARAMINE [Concomitant]
     Active Substance: DEXCHLORPHENIRAMINE MALEATE
     Dosage: 1,OTHER,ONCE
     Route: 042
     Dates: start: 20220909, end: 20220909

REACTIONS (5)
  - Hyperbilirubinaemia [Recovered/Resolved]
  - Blood bilirubin increased [Recovered/Resolved]
  - Cytokine release syndrome [Recovered/Resolved]
  - Pyrexia [Recovered/Resolved]
  - Hypotension [Recovered/Resolved]

NARRATIVE: CASE EVENT DATE: 20220915
